FAERS Safety Report 8327444-X (Version None)
Quarter: 2012Q2

REPORT INFORMATION
  Report Type: 
  Country: None (occurrence: None)
  Receive Date: 20120423
  Receipt Date: 20120410
  Transmission Date: 20120825
  Serious: Yes (Hospitalization)
  Sender: FDA-Public Use
  Company Number: 2012031342

PATIENT
  Age: 64 Year
  Sex: Female
  Weight: 80.7403 kg

DRUGS (21)
  1. ADVAIR HFA [Concomitant]
  2. VITAMIN B12 (VITAMIN B12 NOS) [Concomitant]
  3. MECLIZINE [Concomitant]
  4. MULTI-VITAMIN [Concomitant]
  5. LOVAZA (FISH OIL) [Concomitant]
  6. XYZMAL (LEVOCETIRIZINE DIHYDROCHLORIDE) [Concomitant]
  7. WELLBUTRIN [Concomitant]
  8. CALCIUM [Concomitant]
  9. LOVAZA [Concomitant]
  10. RHINOCORT [Concomitant]
  11. PATANASE [Concomitant]
  12. HIZENTRA [Suspect]
     Indication: IMMUNODEFICIENCY COMMON VARIABLE
     Dosage: 8 G 2X/WEEK, 4 GM (2 ML) ON TWO TO FIVE SITES OVER 101.5 HOURS SUBCUTANEOUS
     Route: 058
     Dates: start: 20120204, end: 20120204
  13. CELEBREX [Concomitant]
  14. NEXIUM [Concomitant]
  15. VERAMYST (FUTICASONE) [Concomitant]
  16. ROBAXIN [Concomitant]
  17. ESTRADIOL [Concomitant]
  18. LIDODERM [Concomitant]
  19. HIZENTRA [Suspect]
     Indication: IMMUNODEFICIENCY COMMON VARIABLE
  20. NEURONTIN [Concomitant]
  21. PREVACID [Concomitant]

REACTIONS (8)
  - FLUSHING [None]
  - INFUSION SITE ERYTHEMA [None]
  - GASTROINTESTINAL DISORDER [None]
  - FATIGUE [None]
  - PAIN [None]
  - HEADACHE [None]
  - INFUSION RELATED REACTION [None]
  - INFUSION SITE SWELLING [None]
